FAERS Safety Report 7303664-8 (Version None)
Quarter: 2011Q1

REPORT INFORMATION
  Report Type: 
  Country: None (occurrence: None)
  Receive Date: 20110221
  Receipt Date: 20110211
  Transmission Date: 20110831
  Serious: Yes (Other)
  Sender: FDA-Public Use
  Company Number: US-SANOFI-AVENTIS-2011SA009860

PATIENT
  Age: 74 Year
  Sex: Female

DRUGS (6)
  1. METOPROLOL SUCCINATE [Concomitant]
  2. MAGNESIUM [Concomitant]
  3. PLAVIX [Suspect]
     Route: 048
     Dates: start: 20090101, end: 20100101
  4. CALCIUM [Concomitant]
  5. PLAVIX [Suspect]
     Indication: STENT PLACEMENT
     Route: 048
     Dates: start: 20080101, end: 20090101
  6. ZOCOR [Concomitant]

REACTIONS (2)
  - HAEMORRHAGE [None]
  - LACERATION [None]
